FAERS Safety Report 13915511 (Version 3)
Quarter: 2017Q3

REPORT INFORMATION
  Report Type: Spontaneous
  Country: AR (occurrence: AR)
  Receive Date: 20170829
  Receipt Date: 20170921
  Transmission Date: 20171127
  Serious: Yes (Other)
  Sender: FDA-Public Use
  Company Number: AR-ROCHE-1980283

PATIENT
  Age: 48 Year
  Sex: Female

DRUGS (4)
  1. ENALAPRIL [Concomitant]
     Active Substance: ENALAPRIL
     Indication: HYPERTENSION
     Route: 065
     Dates: start: 2016
  2. KADCYLA [Suspect]
     Active Substance: ADO-TRASTUZUMAB EMTANSINE
     Indication: HER-2 POSITIVE BREAST CANCER
     Route: 065
     Dates: start: 20160826, end: 20170724
  3. HYDROCHLOROTHIAZIDE. [Concomitant]
     Active Substance: HYDROCHLOROTHIAZIDE
     Indication: HYPERTENSION
     Route: 065
     Dates: start: 2016
  4. HERCEPTIN [Suspect]
     Active Substance: TRASTUZUMAB
     Indication: PRODUCT USED FOR UNKNOWN INDICATION
     Dosage: DURING 1 YEAR
     Route: 065

REACTIONS (2)
  - Thrombocytopenia [Unknown]
  - Nodular regenerative hyperplasia [Not Recovered/Not Resolved]

NARRATIVE: CASE EVENT DATE: 2017
